FAERS Safety Report 8260090-5 (Version None)
Quarter: 2012Q2

REPORT INFORMATION
  Report Type: 
  Country: None (occurrence: None)
  Receive Date: 20120404
  Receipt Date: 20120328
  Transmission Date: 20120825
  Serious: Yes (Other)
  Sender: FDA-Public Use
  Company Number: US-PFIZER INC-2012080421

PATIENT
  Sex: Male

DRUGS (6)
  1. PEPCID [Concomitant]
     Dosage: 20 MG, UNK
     Route: 048
  2. ZOCOR [Concomitant]
     Dosage: 40 MG, UNK
     Route: 048
  3. ULTRAM [Concomitant]
     Dosage: 50 MG, UNK
     Route: 048
  4. ELAVIL [Concomitant]
     Dosage: 10 MG, UNK
     Route: 048
  5. NEURONTIN [Suspect]
     Dosage: 300 MG, 3X/DAY
     Route: 048
  6. ALBUTEROL [Concomitant]
     Dosage: 90 MCG/ACTUATION IN HFFA

REACTIONS (5)
  - HYPERLIPIDAEMIA [None]
  - PERONEAL NERVE PALSY [None]
  - ASTHMA [None]
  - GLUCOSE TOLERANCE IMPAIRED [None]
  - GASTROOESOPHAGEAL REFLUX DISEASE [None]
